FAERS Safety Report 4305202-0 (Version None)
Quarter: 2004Q1

REPORT INFORMATION
  Report Type: 
  Country: None (occurrence: None)
  Receive Date: 20040223
  Receipt Date: 20040114
  Transmission Date: 20041129
  Serious: No
  Sender: FDA-Public Use
  Company Number: SU-2004-002057

PATIENT
  Age: 62 Year
  Sex: Female
  Weight: 55.3388 kg

DRUGS (3)
  1. BENICAR [Suspect]
     Indication: HYPERTENSION
     Dosage: 10 MG QD PO
     Route: 048
     Dates: start: 20031125, end: 20031228
  2. SYNTHROID [Concomitant]
  3. MULTIVITAMIN [Concomitant]

REACTIONS (2)
  - DIARRHOEA [None]
  - VOMITING [None]
